FAERS Safety Report 14217560 (Version 1)
Quarter: 2017Q4

REPORT INFORMATION
  Report Type: Report from Study
  Country: US (occurrence: US)
  Receive Date: 20171123
  Receipt Date: 20171123
  Transmission Date: 20180321
  Serious: Yes (Other)
  Sender: FDA-Public Use
  Company Number: US-GILEAD-2017-0295477

PATIENT
  Age: 55 Year
  Sex: Female

DRUGS (1)
  1. AMBRISENTAN [Suspect]
     Active Substance: AMBRISENTAN
     Indication: PRODUCT USED FOR UNKNOWN INDICATION
     Dosage: 5 MG, UNK
     Route: 065
     Dates: start: 20140828

REACTIONS (8)
  - Pain of skin [Unknown]
  - Bronchitis [Not Recovered/Not Resolved]
  - Intentional dose omission [Unknown]
  - Leukaemia [Unknown]
  - Blister [Unknown]
  - Malaise [Unknown]
  - Cardiac failure congestive [Unknown]
  - Central venous catheterisation [Unknown]
